FAERS Safety Report 5862879-6 (Version None)
Quarter: 2008Q3

REPORT INFORMATION
  Report Type: 
  Country: None (occurrence: None)
  Receive Date: 20080828
  Receipt Date: 20080822
  Transmission Date: 20090109
  Serious: Yes (Hospitalization)
  Sender: FDA-Public Use
  Company Number: A0731280A

PATIENT
  Age: 54 Year
  Sex: Female
  Weight: 93.6 kg

DRUGS (6)
  1. AVANDIA [Suspect]
     Dosage: 2MG PER DAY
     Route: 048
     Dates: start: 20021001, end: 20030101
  2. AVANDAMET [Suspect]
     Route: 048
     Dates: start: 20030101, end: 20030101
  3. GLUCOPHAGE [Concomitant]
     Dates: start: 19990101
  4. METFORMIN HCL [Concomitant]
     Dates: start: 19990101
  5. GLUCOTROL [Concomitant]
     Dates: start: 19990101, end: 20070101
  6. NEXIUM [Concomitant]

REACTIONS (3)
  - CARDIAC DISORDER [None]
  - CARDIAC FAILURE CONGESTIVE [None]
  - INJURY [None]
